FAERS Safety Report 10658440 (Version 3)
Quarter: 2015Q1

REPORT INFORMATION
  Report Type: Spontaneous
  Country: US (occurrence: US)
  Receive Date: 20141217
  Receipt Date: 20150217
  Transmission Date: 20150720
  Serious: No
  Sender: FDA-Public Use
  Company Number: US-GLAXOSMITHKLINE-A1067775A

PATIENT
  Sex: Male

DRUGS (1)
  1. VOTRIENT [Suspect]
     Active Substance: PAZOPANIB HYDROCHLORIDE
     Indication: NEOPLASM MALIGNANT
     Dosage: 200 MG, U
     Route: 065

REACTIONS (4)
  - Weight decreased [Unknown]
  - Therapy cessation [Unknown]
  - Intentional underdose [Unknown]
  - Decreased appetite [Unknown]
